FAERS Safety Report 11420327 (Version 2)
Quarter: 2015Q3

REPORT INFORMATION
  Report Type: Report from Study
  Country: US (occurrence: US)
  Receive Date: 20150826
  Receipt Date: 20150929
  Transmission Date: 20151125
  Serious: Yes (Other)
  Sender: FDA-Public Use
  Company Number: US-SA-2015SA127395

PATIENT
  Age: 52 Year
  Sex: Female

DRUGS (2)
  1. AUBAGIO [Suspect]
     Active Substance: TERIFLUNOMIDE
     Indication: MULTIPLE SCLEROSIS
     Route: 048
  2. AUBAGIO [Suspect]
     Active Substance: TERIFLUNOMIDE
     Indication: MULTIPLE SCLEROSIS
     Route: 048
     Dates: start: 20150609, end: 20150809

REACTIONS (11)
  - Renal failure [Unknown]
  - Poor quality sleep [Unknown]
  - Pelvic pain [Unknown]
  - Weight decreased [Unknown]
  - Vomiting [Unknown]
  - Renal pain [Unknown]
  - Diarrhoea [Unknown]
  - Nephrolithiasis [Unknown]
  - Blood urine present [Unknown]
  - Myalgia [Unknown]
  - Hypoaesthesia [Unknown]

NARRATIVE: CASE EVENT DATE: 2015
